FAERS Safety Report 13207124 (Version 1)
Quarter: 2017Q1

REPORT INFORMATION
  Report Type: Spontaneous
  Country: US (occurrence: US)
  Receive Date: 20170209
  Receipt Date: 20170209
  Transmission Date: 20170428
  Serious: Yes (Disabling)
  Sender: FDA-Public Use
  Company Number: None

PATIENT
  Age: 55 Year
  Sex: Female
  Weight: 88.65 kg

DRUGS (7)
  1. CLONAZEPAM. [Concomitant]
     Active Substance: CLONAZEPAM
  2. IBUPROFEN. [Concomitant]
     Active Substance: IBUPROFEN
  3. PRISTIQ EXTENDED-RELEASE [Concomitant]
     Active Substance: DESVENLAFAXINE SUCCINATE
  4. LEVAQUIN [Suspect]
     Active Substance: LEVOFLOXACIN
     Indication: SINUSITIS
     Dosage: ?          QUANTITY:10 CAPSULE(S);?
     Route: 048
     Dates: start: 20170117, end: 20170129
  5. WELLBUTRIN [Concomitant]
     Active Substance: BUPROPION HYDROCHLORIDE
  6. TYLENOL [Concomitant]
     Active Substance: ACETAMINOPHEN
  7. HERBAL COUGH DROPS [Concomitant]
     Active Substance: MENTHOL

REACTIONS (28)
  - Nightmare [None]
  - Musculoskeletal stiffness [None]
  - Swelling face [None]
  - Neuropathy peripheral [None]
  - Peripheral swelling [None]
  - Fatigue [None]
  - Gait disturbance [None]
  - Insomnia [None]
  - Hypoaesthesia [None]
  - Burning sensation [None]
  - Arthralgia [None]
  - Confusional state [None]
  - Paraesthesia [None]
  - Dizziness [None]
  - Inflammation [None]
  - Pain [None]
  - Balance disorder [None]
  - Lip swelling [None]
  - Oral discomfort [None]
  - Eyelid oedema [None]
  - Joint swelling [None]
  - Tendon disorder [None]
  - Asthenia [None]
  - Myalgia [None]
  - Muscle spasms [None]
  - Swollen tongue [None]
  - Tongue discomfort [None]
  - Cognitive disorder [None]

NARRATIVE: CASE EVENT DATE: 20170120
